FAERS Safety Report 4317084-1 (Version None)
Quarter: 2004Q1

REPORT INFORMATION
  Report Type: 
  Country: None (occurrence: None)
  Receive Date: 20040312
  Receipt Date: 20040225
  Transmission Date: 20041129
  Serious: Yes (Hospitalization)
  Sender: FDA-Public Use
  Company Number: S03-ESP-04801-01

PATIENT
  Age: 83 Year
  Sex: Female

DRUGS (10)
  1. MEMANTINE HCL [Suspect]
     Indication: DEMENTIA ALZHEIMER'S TYPE
     Dosage: 15 MG QD PO
     Route: 048
     Dates: start: 20030423, end: 20030618
  2. TORSEMIDE [Concomitant]
  3. RISPERIDONE [Concomitant]
  4. GLYCERYL TRINITRATE [Concomitant]
  5. ASPIRIN [Concomitant]
  6. CAFINITRINA [Concomitant]
  7. LORAZEPAM [Concomitant]
  8. DEXIBUPROFEN [Concomitant]
  9. LACTULOSE [Concomitant]
  10. ENALAPRIL MALEATE [Concomitant]

REACTIONS (9)
  - BLOOD CREATINE PHOSPHOKINASE INCREASED [None]
  - CARDIOMEGALY [None]
  - CYANOSIS CENTRAL [None]
  - ELECTROCARDIOGRAM CHANGE [None]
  - HYPOTENSION [None]
  - MYOCARDIAL INFARCTION [None]
  - RESPIRATORY FAILURE [None]
  - RESPIRATORY TRACT INFECTION [None]
  - WHITE BLOOD CELL COUNT INCREASED [None]
